FAERS Safety Report 12173676 (Version 1)
Quarter: 2016Q1

REPORT INFORMATION
  Report Type: Spontaneous
  Country: CA (occurrence: None)
  Receive Date: 20160311
  Receipt Date: 20160311
  Transmission Date: 20160526
  Serious: Yes (Other)
  Sender: FDA-Public Use
  Company Number: None

PATIENT
  Age: 71 Year
  Sex: Male
  Weight: 96 kg

DRUGS (14)
  1. AMLOPIDIENE [Concomitant]
  2. METFORMIN [Concomitant]
     Active Substance: METFORMIN HYDROCHLORIDE
  3. VICTOZA [Concomitant]
     Active Substance: LIRAGLUTIDE
  4. ATENOLOL. [Concomitant]
     Active Substance: ATENOLOL
  5. CANDASARTIN [Concomitant]
  6. VITAMIN C [Concomitant]
     Active Substance: ASCORBIC ACID
  7. CINNAMON EXTRACT [Concomitant]
  8. NOVORAPID [Concomitant]
     Active Substance: INSULIN ASPART
  9. LANTUS [Concomitant]
     Active Substance: INSULIN GLARGINE
  10. VIT B [Concomitant]
     Active Substance: VITAMIN B
  11. INVOKANA [Suspect]
     Active Substance: CANAGLIFLOZIN
     Indication: TYPE 2 DIABETES MELLITUS
     Dosage: 1 X 100  MG/DAY ONCE DAILY
     Route: 048
  12. CYMBALTA [Concomitant]
     Active Substance: DULOXETINE HYDROCHLORIDE
  13. ALPHA LIPOIC ACID [Concomitant]
     Active Substance: .ALPHA.-LIPOIC ACID
  14. VITAMIN D [Concomitant]
     Active Substance: CHOLECALCIFEROL

REACTIONS (4)
  - Urinary incontinence [None]
  - Micturition urgency [None]
  - Pollakiuria [None]
  - Weight decreased [None]

NARRATIVE: CASE EVENT DATE: 20160310
